FAERS Safety Report 25657816 (Version 1)
Quarter: 2025Q3

REPORT INFORMATION
  Report Type: Report from Study
  Country: US (occurrence: US)
  Receive Date: 20250808
  Receipt Date: 20250808
  Transmission Date: 20251021
  Serious: Yes (Other)
  Sender: ABBVIE
  Company Number: US-ABBVIE-6403213

PATIENT
  Age: 73 Year
  Sex: Male

DRUGS (2)
  1. HUMIRA [Suspect]
     Active Substance: ADALIMUMAB
     Indication: Uveitis
     Dosage: FORM STRENGTH 40 MG/ CITRATE FREE
     Route: 058
     Dates: start: 2021
  2. IRON [Concomitant]
     Active Substance: IRON
     Indication: Product used for unknown indication

REACTIONS (3)
  - Varicose vein [Unknown]
  - Varicose vein [Recovered/Resolved]
  - Oesophageal haemorrhage [Recovered/Resolved]

NARRATIVE: CASE EVENT DATE: 20240301
